FAERS Safety Report 6029187-4 (Version None)
Quarter: 2009Q1

REPORT INFORMATION
  Report Type: 
  Country: None (occurrence: None)
  Receive Date: 20090102
  Receipt Date: 20081218
  Transmission Date: 20090719
  Serious: Yes (Hospitalization, Other)
  Sender: FDA-Public Use
  Company Number: 2008SP025890

PATIENT
  Sex: Female

DRUGS (5)
  1. INTRON A [Suspect]
     Indication: HEPATITIS C
     Dosage: TIW
     Dates: start: 20020101
  2. REBETOL [Suspect]
     Indication: HEPATITIS C
     Dosage: PO
     Route: 048
     Dates: start: 20020101, end: 20030101
  3. PEG-INTRON [Suspect]
     Indication: HEPATITIS C
     Dosage: QW
     Dates: end: 20030101
  4. DEMEROL [Suspect]
     Indication: DRUG USE FOR UNKNOWN INDICATION
  5. MORPHINE [Suspect]
     Indication: DRUG USE FOR UNKNOWN INDICATION

REACTIONS (6)
  - COLLAPSE OF LUNG [None]
  - COMPARTMENT SYNDROME [None]
  - INJECTION SITE SWELLING [None]
  - NAUSEA [None]
  - STOMATITIS [None]
  - VOMITING [None]
